FAERS Safety Report 9176570 (Version 1)
Quarter: 2013Q1

REPORT INFORMATION
  Report Type: Spontaneous
  Country: US (occurrence: US)
  Receive Date: 20130321
  Receipt Date: 20130321
  Transmission Date: 20140127
  Serious: Yes (Other)
  Sender: FDA-Public Use
  Company Number: US-JNJFOC-20130305083

PATIENT
  Sex: Male
  Weight: 89.36 kg

DRUGS (3)
  1. XARELTO [Suspect]
     Indication: PULMONARY THROMBOSIS
     Route: 048
     Dates: start: 20130212
  2. XARELTO [Suspect]
     Indication: PULMONARY THROMBOSIS
     Dosage: 20MG/EVENING MEAL
     Route: 048
     Dates: start: 2012, end: 201302
  3. ASPIRIN [Suspect]
     Indication: PRODUCT USED FOR UNKNOWN INDICATION
     Route: 048
     Dates: start: 2005

REACTIONS (4)
  - Fall [Recovered/Resolved]
  - Rotator cuff syndrome [Recovered/Resolved]
  - Ligament rupture [Recovered/Resolved]
  - Muscle rupture [Recovered/Resolved]
